FAERS Safety Report 5087333-3 (Version None)
Quarter: 2006Q3

REPORT INFORMATION
  Report Type: 
  Country: None (occurrence: None)
  Receive Date: 20060823
  Receipt Date: 20060823
  Transmission Date: 20061208
  Serious: No
  Sender: FDA-Public Use
  Company Number: None

PATIENT
  Age: 49 Year
  Sex: Male
  Weight: 113.3993 kg

DRUGS (2)
  1. CARISOPRODOL [Suspect]
     Indication: BACK INJURY
     Dosage: 1 TABLET   3 TIMES A DAY    PO
     Route: 048
     Dates: start: 20051229, end: 20060103
  2. CYCLOBENZAPRINE HCL [Suspect]
     Dosage: 1 TABLET   2 TIMES A DAY   PO
     Route: 048
     Dates: start: 20051230, end: 20060103

REACTIONS (5)
  - BALANCE DISORDER [None]
  - CLUMSINESS [None]
  - HEADACHE [None]
  - HYPOAESTHESIA [None]
  - PARAESTHESIA [None]
